FAERS Safety Report 23134858 (Version 1)
Quarter: 2023Q4

REPORT INFORMATION
  Report Type: Spontaneous
  Country: US (occurrence: None)
  Receive Date: 20231101
  Receipt Date: 20231101
  Transmission Date: 20240109
  Serious: Yes (Hospitalization)
  Sender: FDA-Public Use
  Company Number: None

PATIENT
  Age: 5 Month
  Sex: Female

DRUGS (2)
  1. PULMOZYME [Suspect]
     Active Substance: DORNASE ALFA
     Indication: Cystic fibrosis
     Dosage: OTHER QUANTITY : 2.5 MG/2.5ML;?FREQUENCY : DAILY;?
     Route: 055
  2. PULMOZYME [Suspect]
     Active Substance: DORNASE ALFA
     Dosage: FREQUENCY : DAILY;?
     Route: 055

REACTIONS (5)
  - Rhinovirus infection [None]
  - Dyspnoea [None]
  - Therapy interrupted [None]
  - Product availability issue [None]
  - Insurance issue [None]

NARRATIVE: CASE EVENT DATE: 20231010
